FAERS Safety Report 23326834 (Version 1)
Quarter: 2023Q4

REPORT INFORMATION
  Report Type: Spontaneous
  Country: GR (occurrence: GR)
  Receive Date: 20231221
  Receipt Date: 20231221
  Transmission Date: 20240110
  Serious: Yes (Life-Threatening, Hospitalization, Other)
  Sender: FDA-Public Use
  Company Number: GR-009507513-2312GRC006657

PATIENT
  Age: 73 Year
  Sex: Male

DRUGS (1)
  1. BCG LIVE [Suspect]
     Active Substance: BACILLUS CALMETTE-GUERIN SUBSTRAIN TICE LIVE ANTIGEN
     Indication: Bladder cancer
     Dosage: UNK
     Route: 043

REACTIONS (5)
  - Disseminated Bacillus Calmette-Guerin infection [Unknown]
  - Bacterial sepsis [Unknown]
  - Septic shock [Unknown]
  - Atypical mycobacterial pneumonia [Unknown]
  - Acute respiratory failure [Recovered/Resolved]
